FAERS Safety Report 10096841 (Version 1)
Quarter: 2014Q2

REPORT INFORMATION
  Report Type: Spontaneous
  Country: US (occurrence: US)
  Receive Date: 20140422
  Receipt Date: 20140422
  Transmission Date: 20141212
  Serious: No
  Sender: FDA-Public Use
  Company Number: US-GILEAD-2012-0059311

PATIENT
  Age: 74 Year
  Sex: Female

DRUGS (8)
  1. LETAIRIS [Suspect]
     Indication: PULMONARY HYPERTENSION
     Dosage: 10 MG, QD
     Route: 048
     Dates: start: 201206, end: 201207
  2. TRACLEER [Concomitant]
  3. ATENOLOL [Concomitant]
  4. ALPROZOLAM [Concomitant]
  5. ALLOPURINOL [Concomitant]
  6. WARFARIN [Concomitant]
  7. LEVOTHROID [Concomitant]
  8. FUROSEMIDE [Concomitant]

REACTIONS (2)
  - Generalised oedema [Recovered/Resolved]
  - Weight increased [Unknown]
